FAERS Safety Report 7869784-4 (Version None)
Quarter: 2011Q4

REPORT INFORMATION
  Report Type: 
  Country: None (occurrence: None)
  Receive Date: 20111028
  Receipt Date: 20110110
  Transmission Date: 20120403
  Serious: No
  Sender: FDA-Public Use
  Company Number: US-AMGEN-USASP2011001396

PATIENT
  Age: 44 Year
  Sex: Female

DRUGS (2)
  1. ENBREL [Suspect]
     Indication: RHEUMATOID ARTHRITIS
     Dosage: 50 MG, QWK
     Dates: end: 20100101
  2. TREXALL [Concomitant]
     Dosage: UNK

REACTIONS (3)
  - LIVER DISORDER [None]
  - DRUG INEFFECTIVE [None]
  - CYSTITIS [None]
